FAERS Safety Report 5005299-9 (Version None)
Quarter: 2006Q2

REPORT INFORMATION
  Report Type: 
  Country: None (occurrence: None)
  Receive Date: 20060518
  Receipt Date: 20060510
  Transmission Date: 20061013
  Serious: Yes (Disabling)
  Sender: FDA-Public Use
  Company Number: JP-JPN-A200601514

PATIENT
  Age: 26 Year
  Sex: Female

DRUGS (7)
  1. EPIVIR [Suspect]
     Indication: HIV INFECTION
     Dosage: 150MG TWICE PER DAY
     Route: 048
     Dates: start: 20041025, end: 20051113
  2. ZERIT [Suspect]
     Indication: HIV INFECTION
     Route: 048
     Dates: start: 20041025, end: 20051113
  3. KALETRA [Suspect]
     Indication: HIV INFECTION
     Route: 048
     Dates: start: 20041025, end: 20050908
  4. RIFABUTIN [Suspect]
     Route: 065
     Dates: end: 20050314
  5. STOCRIN [Concomitant]
     Indication: HIV INFECTION
     Route: 048
     Dates: start: 20050909
  6. TRUVADA [Concomitant]
     Indication: HIV INFECTION
     Dosage: 1 PER DAY
     Route: 048
     Dates: start: 20051114
  7. DIFLUCAN [Concomitant]
     Dosage: 100MG PER DAY
     Route: 048
     Dates: start: 20040817, end: 20050711

REACTIONS (6)
  - ATYPICAL MYCOBACTERIAL LYMPHADENITIS [None]
  - COUGH [None]
  - IMMUNE RECONSTITUTION SYNDROME [None]
  - MYCOBACTERIUM AVIUM COMPLEX INFECTION [None]
  - PYREXIA [None]
  - UVEITIS [None]
